FAERS Safety Report 5443434-9 (Version None)
Quarter: 2007Q3

REPORT INFORMATION
  Report Type: 
  Country: None (occurrence: None)
  Receive Date: 20070905
  Receipt Date: 20070827
  Transmission Date: 20080115
  Serious: Yes (Death)
  Sender: FDA-Public Use
  Company Number: B0485540A

PATIENT
  Age: 57 Year
  Sex: Male

DRUGS (6)
  1. AMOXICILLIN + CLAVULANATE POTASSIUM [Suspect]
     Indication: INFECTION
     Route: 065
  2. TAZOCILLINE [Suspect]
     Indication: INFECTION
     Route: 065
  3. OFLOXACIN [Suspect]
     Indication: INFECTION
     Route: 065
  4. IMIPENEM [Suspect]
     Route: 065
  5. AMIKACIN [Suspect]
     Route: 065
  6. CEFTRIAXONE [Suspect]
     Route: 065

REACTIONS (6)
  - HYPOTENSION [None]
  - INFECTION [None]
  - MULTI-ORGAN FAILURE [None]
  - MULTIPLE-DRUG RESISTANCE [None]
  - PYREXIA [None]
  - SEPTIC SHOCK [None]
